FAERS Safety Report 13651411 (Version 1)
Quarter: 2017Q2

REPORT INFORMATION
  Report Type: Spontaneous
  Country: US (occurrence: US)
  Receive Date: 20170614
  Receipt Date: 20170614
  Transmission Date: 20170830
  Serious: Yes (Hospitalization, Other)
  Sender: FDA-Public Use
  Company Number: US-B.I. PHARMACEUTICALS,INC./RIDGEFIELD-2017-BI-032482

PATIENT
  Age: 89 Year
  Sex: Female

DRUGS (8)
  1. DULCOLAX STOOL SOFTENER [Suspect]
     Active Substance: DOCUSATE SODIUM
     Indication: CONSTIPATION
     Dosage: 2-3 CAPSULES 1 TIME DAILY;  UNIT DOSE/DAILY DOSE: 200-300 MG
     Route: 048
     Dates: end: 2016
  2. POTASSIUM [Concomitant]
     Active Substance: POTASSIUM
     Indication: PRODUCT USED FOR UNKNOWN INDICATION
     Route: 048
  3. LASIX [Concomitant]
     Active Substance: FUROSEMIDE
     Indication: PRODUCT USED FOR UNKNOWN INDICATION
     Route: 048
  4. DULCOLAX (BISACODYL) [Suspect]
     Active Substance: BISACODYL
     Indication: CONSTIPATION
     Dosage: 2 TABLETS DAILY; ADMINISTRATION CORRECT? NO ACTION(S)
     Route: 048
  5. ELIQUIS [Concomitant]
     Active Substance: APIXABAN
     Indication: ATRIAL FIBRILLATION
     Route: 048
  6. DULCOLAX STOOL SOFTENER [Suspect]
     Active Substance: DOCUSATE SODIUM
     Dosage: 2-3 CAPSULES 1 TIME DAILY; UNIT DOSE/DAILY DOSE: 200-300 MG
     Route: 048
     Dates: start: 2016
  7. DULCO EASE PINK STOOL SOFTENER [Suspect]
     Active Substance: DOCUSATE SODIUM
     Indication: CONSTIPATION
     Dosage: 2-3 CAPSULES 1 TIME DAILY;  ADMINISTRATION CORRECT? NR?UNIT DOSE/DAILY DOSE: 200-300 MG
     Route: 048
     Dates: start: 2016, end: 2016
  8. LASIX [Concomitant]
     Active Substance: FUROSEMIDE
     Dosage: 1 TABLET EACH EVENING;  FORM STRENGTH: 40 MG; FORMULATION: TABLET
     Route: 048

REACTIONS (3)
  - Myocardial infarction [Recovered/Resolved]
  - Drug ineffective [Not Recovered/Not Resolved]
  - Fluid retention [Recovered/Resolved]

NARRATIVE: CASE EVENT DATE: 2016
